FAERS Safety Report 9369943 (Version 1)
Quarter: 2013Q2

REPORT INFORMATION
  Report Type: Spontaneous
  Country: US (occurrence: US)
  Receive Date: 20130626
  Receipt Date: 20130626
  Transmission Date: 20140414
  Serious: Yes (Other)
  Sender: FDA-Public Use
  Company Number: US-BAYER-2013-075208

PATIENT
  Sex: Female
  Weight: 77.1 kg

DRUGS (17)
  1. BETASERON [Suspect]
     Dosage: 0.3 MG, UNK
  2. CARAFATE [Concomitant]
     Dosage: 1 G, UNK
  3. TIZANIDINE [Concomitant]
     Dosage: 2 MG, UNK
  4. XARELTO [Concomitant]
     Dosage: 10 MG, UNK
  5. DILAUDID [Concomitant]
     Dosage: 2 MG, UNK
  6. SIMVASTIN [Concomitant]
     Dosage: 40 MG, UNK
  7. PANTOPRAZOLE [Concomitant]
     Dosage: 40 MG, UNK
  8. GABAPENTIN [Concomitant]
     Dosage: 100 MG, UNK
  9. FUROSEMIDE [Concomitant]
     Dosage: 20 MG, UNK
  10. DIAZEPAM [Concomitant]
     Dosage: 5 MG, UNK
  11. CLIMARA [ESTRADIOL] [Concomitant]
     Dosage: 0.025 MG, UNK
  12. POTASSIUM [Concomitant]
     Dosage: 75 MG, UNK
  13. OXYCONTIN [Concomitant]
     Dosage: 30 MG, UNK
  14. PROZAC [Concomitant]
     Dosage: 20 MG, UNK
  15. ACETAMINOPHEN [Concomitant]
     Dosage: 650 MG, UNK
  16. OXYBUTYNIN [Concomitant]
     Dosage: 5 MG, UNK
  17. VENTOLIN HFA [Concomitant]

REACTIONS (2)
  - Multiple sclerosis relapse [Unknown]
  - Drug ineffective [Unknown]
